FAERS Safety Report 8354750-5 (Version None)
Quarter: 2012Q2

REPORT INFORMATION
  Report Type: 
  Country: None (occurrence: None)
  Receive Date: 20120511
  Receipt Date: 20120507
  Transmission Date: 20120825
  Serious: Yes (Hospitalization)
  Sender: FDA-Public Use
  Company Number: FR-GLAXOSMITHKLINE-B0798096A

PATIENT
  Sex: Female
  Weight: 62 kg

DRUGS (1)
  1. PAZOPANIB [Suspect]
     Indication: GASTROINTESTINAL STROMAL TUMOUR
     Dosage: 800MG PER DAY
     Route: 048
     Dates: start: 20111117

REACTIONS (2)
  - ANAEMIA [None]
  - MUCOSAL INFLAMMATION [None]
